FAERS Safety Report 4796735-1 (Version None)
Quarter: 2005Q4

REPORT INFORMATION
  Report Type: 
  Country: None (occurrence: None)
  Receive Date: 20051013
  Receipt Date: 20050915
  Transmission Date: 20060501
  Serious: Yes (Hospitalization)
  Sender: FDA-Public Use
  Company Number: 200512115DE

PATIENT
  Age: 64 Year
  Sex: Female
  Weight: 67 kg

DRUGS (15)
  1. ARAVA [Suspect]
     Indication: RHEUMATOID ARTHRITIS
     Route: 048
     Dates: start: 20030518, end: 20040115
  2. METHOTREXATE [Suspect]
     Indication: RHEUMATOID ARTHRITIS
     Route: 048
     Dates: start: 20010201, end: 20040115
  3. PREDNISOLONE [Concomitant]
  4. VIOXX [Concomitant]
  5. DURAGESIC-100 [Concomitant]
  6. FOSAMAX [Concomitant]
  7. LORZAAR [Concomitant]
  8. LANICOR [Concomitant]
  9. TOREM [Concomitant]
  10. ALDACTONE [Concomitant]
  11. DILATREND [Concomitant]
  12. MARCUMAR [Concomitant]
     Dosage: DOSE: ACCORDING TO QUICK
  13. IDEOS [Concomitant]
  14. KALINOR [Concomitant]
  15. MAGNESIUM [Concomitant]

REACTIONS (12)
  - ANOREXIA [None]
  - CARDIAC FAILURE [None]
  - DIZZINESS [None]
  - DYSPNOEA EXACERBATED [None]
  - ECZEMA [None]
  - GASTRITIS [None]
  - MITRAL VALVE REPLACEMENT [None]
  - NAUSEA [None]
  - PANCYTOPENIA [None]
  - POST PROCEDURAL COMPLICATION [None]
  - REFUSAL OF TREATMENT BY PATIENT [None]
  - SINUSITIS [None]
